FAERS Safety Report 8687021 (Version 9)
Quarter: 2013Q4

REPORT INFORMATION
  Report Type: Spontaneous
  Country: JP (occurrence: JP)
  Receive Date: 20120727
  Receipt Date: 20131024
  Transmission Date: 20140711
  Serious: Yes (Hospitalization)
  Sender: FDA-Public Use
  Company Number: JP-CELGENEUS-087-21880-12072547

PATIENT
  Age: 75 Year
  Sex: Male
  Weight: 60.5 kg

DRUGS (35)
  1. REVLIMID [Suspect]
     Indication: PLASMA CELL MYELOMA
     Dosage: 10 MILLIGRAM
     Route: 048
     Dates: start: 20120712
  2. REVLIMID [Suspect]
     Route: 048
     Dates: start: 20120724
  3. REVLIMID [Suspect]
     Route: 048
     Dates: start: 20120820
  4. LENADEX [Suspect]
     Indication: PLASMA CELL MYELOMA
     Dosage: 40 MILLIGRAM
     Route: 048
     Dates: start: 20120612
  5. LENADEX [Suspect]
     Route: 048
     Dates: start: 20120724
  6. ELOTUZUMAB [Suspect]
     Indication: PLASMA CELL MYELOMA
     Route: 065
  7. ZOLEDRONIC ACID HYDRATE [Concomitant]
     Indication: PRODUCT USED FOR UNKNOWN INDICATION
     Route: 065
     Dates: start: 20120702, end: 20120702
  8. ZOLEDRONIC ACID HYDRATE [Concomitant]
     Route: 065
     Dates: start: 20120820, end: 20120820
  9. ZOLEDRONIC ACID HYDRATE [Concomitant]
     Route: 065
     Dates: start: 20121024, end: 20121024
  10. ZOLEDRONIC ACID HYDRATE [Concomitant]
     Route: 065
     Dates: start: 20121121, end: 20121121
  11. ZOLEDRONIC ACID HYDRATE [Concomitant]
     Route: 065
     Dates: start: 20121217, end: 20121217
  12. SUCRALFATE [Concomitant]
     Indication: PRODUCT USED FOR UNKNOWN INDICATION
     Route: 065
     Dates: start: 20120717, end: 20120902
  13. ASPIRIN [Concomitant]
     Indication: PRODUCT USED FOR UNKNOWN INDICATION
     Route: 065
     Dates: start: 20120612, end: 20120719
  14. ASPIRIN [Concomitant]
     Route: 065
     Dates: start: 20120724, end: 20120806
  15. ASPIRIN [Concomitant]
     Route: 065
     Dates: start: 20120820, end: 20121014
  16. INDOMETACIN [Concomitant]
     Indication: PRODUCT USED FOR UNKNOWN INDICATION
     Route: 065
     Dates: start: 20111003
  17. BEZAFIBRATE [Concomitant]
     Indication: PRODUCT USED FOR UNKNOWN INDICATION
     Route: 065
     Dates: start: 20110813
  18. ALLOPURINOL [Concomitant]
     Indication: PRODUCT USED FOR UNKNOWN INDICATION
     Route: 065
     Dates: start: 20110813
  19. AMLODIPINE BESILATE [Concomitant]
     Indication: PRODUCT USED FOR UNKNOWN INDICATION
     Route: 065
     Dates: start: 20110813
  20. TELMISARTAN [Concomitant]
     Indication: PRODUCT USED FOR UNKNOWN INDICATION
     Route: 065
     Dates: start: 20110813
  21. ISOSORBIDE DINITRATE [Concomitant]
     Indication: PRODUCT USED FOR UNKNOWN INDICATION
     Route: 065
     Dates: start: 20110813
  22. ACICLOVIR [Concomitant]
     Indication: PRODUCT USED FOR UNKNOWN INDICATION
     Route: 065
     Dates: start: 20110810
  23. DAIFEN (SULFAMETHOXAZOLE, TRIMETHOPRIM) [Concomitant]
     Indication: PRODUCT USED FOR UNKNOWN INDICATION
     Route: 065
     Dates: start: 20110808
  24. LANSOPRAZOLE [Concomitant]
     Indication: PRODUCT USED FOR UNKNOWN INDICATION
     Route: 065
     Dates: start: 20110808
  25. MAGNESIUM OXIDE [Concomitant]
     Indication: PRODUCT USED FOR UNKNOWN INDICATION
     Route: 065
     Dates: start: 20120823, end: 20120825
  26. MAGNESIUM OXIDE [Concomitant]
     Indication: ADVERSE EVENT
     Route: 065
     Dates: start: 20120829, end: 20120831
  27. MAGNESIUM OXIDE [Concomitant]
     Route: 065
     Dates: start: 20120901
  28. PANTETHINE [Concomitant]
     Indication: ADVERSE EVENT
     Route: 065
     Dates: start: 20120823, end: 20120825
  29. PANTETHINE [Concomitant]
     Indication: PRODUCT USED FOR UNKNOWN INDICATION
     Route: 065
     Dates: start: 20120829, end: 20120831
  30. PANTETHINE [Concomitant]
     Route: 065
     Dates: start: 20120901
  31. CROTAMITON [Concomitant]
     Indication: ADVERSE EVENT
     Route: 065
     Dates: start: 20120829, end: 20120831
  32. CROTAMITON [Concomitant]
     Indication: ADVERSE EVENT
     Route: 065
     Dates: start: 20120901
  33. CROTAMITON [Concomitant]
     Route: 065
     Dates: start: 20121018, end: 20130218
  34. DOMPERIDONE [Concomitant]
     Indication: PRODUCT USED FOR UNKNOWN INDICATION
     Route: 065
     Dates: start: 20130122, end: 20130204
  35. FLUID [Concomitant]
     Indication: PRODUCT USED FOR UNKNOWN INDICATION
     Route: 065
     Dates: start: 20120807, end: 20120813

REACTIONS (1)
  - Hyponatraemia [Not Recovered/Not Resolved]
